FAERS Safety Report 6099417-1 (Version None)
Quarter: 2009Q1

REPORT INFORMATION
  Report Type: 
  Country: None (occurrence: None)
  Receive Date: 20090225
  Receipt Date: 20090225
  Transmission Date: 20090719
  Serious: No
  Sender: FDA-Public Use
  Company Number: None

PATIENT
  Age: 43 Year
  Sex: Male
  Weight: 99.7913 kg

DRUGS (1)
  1. OIL-FREE ACNE WASH SALICYLIC ACID 2%NEUTROGENA [Suspect]
     Indication: ACNE
     Dosage: ONE PUMP FROM DISPENSER ONCE A DAY TOP
     Route: 061
     Dates: start: 20080801, end: 20080901

REACTIONS (4)
  - ACCIDENTAL EXPOSURE [None]
  - EYE IRRITATION [None]
  - VISION BLURRED [None]
  - VISUAL ACUITY REDUCED [None]
